FAERS Safety Report 26010273 (Version 1)
Quarter: 2025Q4

REPORT INFORMATION
  Report Type: Report from Study
  Country: CN (occurrence: None)
  Receive Date: 20251107
  Receipt Date: 20251107
  Transmission Date: 20260117
  Serious: Yes (Hospitalization)
  Sender: JIANGSU HANSOH PHARMACEUTICAL GROUP CO., LTD.
  Company Number: CN-Hansoh-20252190020505

PATIENT
  Age: 73 Year
  Sex: Male
  Weight: 54 kg

DRUGS (7)
  1. ADEBRELIMAB [Suspect]
     Active Substance: ADEBRELIMAB
     Indication: Non-small cell lung cancer
     Dosage: 1200 MG, Q3W
     Route: 041
     Dates: start: 20250821, end: 20250821
  2. ADEBRELIMAB [Suspect]
     Active Substance: ADEBRELIMAB
     Dosage: 1200 MG, Q3W
     Route: 041
     Dates: start: 20250928, end: 20250928
  3. INVESTIGATIONAL PRODUCT [Suspect]
     Active Substance: INVESTIGATIONAL PRODUCT
     Indication: Non-small cell lung cancer
     Dosage: 280 MG, Q3W
     Route: 041
     Dates: start: 20250821, end: 20250821
  4. PEMETREXED DISODIUM [Suspect]
     Active Substance: PEMETREXED DISODIUM
     Indication: Non-small cell lung cancer
     Dosage: 775 MG, Q3W
     Route: 041
     Dates: start: 20250821, end: 20250821
  5. PEMETREXED DISODIUM [Suspect]
     Active Substance: PEMETREXED DISODIUM
     Dosage: 600 MG, Q3W
     Route: 041
     Dates: start: 20250928, end: 20250928
  6. CARBOPLATIN [Suspect]
     Active Substance: CARBOPLATIN
     Indication: Non-small cell lung cancer
     Dosage: 420 MG, Q3W
     Route: 041
     Dates: start: 20250821, end: 20250821
  7. CARBOPLATIN [Suspect]
     Active Substance: CARBOPLATIN
     Dosage: 330MG,EVERY 3 WEEKS
     Route: 041
     Dates: start: 20250928, end: 20250928

REACTIONS (1)
  - Gastritis [Recovered/Resolved]

NARRATIVE: CASE EVENT DATE: 20250930
